FAERS Safety Report 19028625 (Version 1)
Quarter: 2021Q1

REPORT INFORMATION
  Report Type: Report from Study
  Country: US (occurrence: US)
  Receive Date: 20210318
  Receipt Date: 20210318
  Transmission Date: 20210420
  Serious: Yes (Hospitalization)
  Sender: FDA-Public Use
  Company Number: US-JNJFOC-20210315274

PATIENT
  Age: 19 Year
  Sex: Female

DRUGS (2)
  1. SPRAVATO [Suspect]
     Active Substance: ESKETAMINE
     Indication: DEPRESSION
     Dosage: 3 TOTAL DOSES
     Dates: start: 20200609, end: 20200616
  2. SPRAVATO [Suspect]
     Active Substance: ESKETAMINE
     Dosage: 27 TOTAL DOSES
     Dates: start: 20200623, end: 20210304

REACTIONS (1)
  - Hospitalisation [Unknown]
